FAERS Safety Report 13052471 (Version 2)
Quarter: 2018Q3

REPORT INFORMATION
  Report Type: Spontaneous
  Country: US (occurrence: US)
  Receive Date: 20161221
  Receipt Date: 20180828
  Transmission Date: 20181010
  Serious: Yes (Hospitalization)
  Sender: FDA-Public Use
  Company Number: US-IMPAX LABORATORIES, INC-2016-IPXL-02391

PATIENT
  Age: 45 Year
  Sex: Male

DRUGS (3)
  1. MEROPENEM. [Interacting]
     Active Substance: MEROPENEM
     Indication: TOXICITY TO VARIOUS AGENTS
     Dosage: 500 MG, EVERY 6HR (TOTAL OF EIGHT DOSES)
     Route: 042
  2. MEROPENEM. [Interacting]
     Active Substance: MEROPENEM
     Indication: PNEUMONIA ASPIRATION
  3. DIVALPROEX SODIUM ER [Suspect]
     Active Substance: DIVALPROEX SODIUM
     Indication: INTENTIONAL OVERDOSE
     Dosage: 10 G, SINGLE
     Route: 048

REACTIONS (4)
  - Intentional overdose [Recovered/Resolved]
  - Toxicity to various agents [Recovered/Resolved]
  - Pneumonia aspiration [Unknown]
  - Coma [Recovered/Resolved]
